FAERS Safety Report 12282891 (Version 1)
Quarter: 2016Q2

REPORT INFORMATION
  Report Type: Spontaneous
  Country: US (occurrence: US)
  Receive Date: 20160419
  Receipt Date: 20160419
  Transmission Date: 20160815
  Serious: Yes (Other)
  Sender: FDA-Public Use
  Company Number: US-SA-2016SA077878

PATIENT
  Age: 72 Year
  Sex: Male
  Weight: 92.1 kg

DRUGS (6)
  1. LETAIRIS [Suspect]
     Active Substance: AMBRISENTAN
     Route: 065
     Dates: start: 20151007
  2. LETAIRIS [Suspect]
     Active Substance: AMBRISENTAN
     Route: 065
     Dates: start: 20151007
  3. LASIX [Suspect]
     Active Substance: FUROSEMIDE
     Route: 065
     Dates: end: 201512
  4. TYVASO [Suspect]
     Active Substance: TREPROSTINIL
     Indication: PULMONARY ARTERIAL HYPERTENSION
     Dosage: DAILY DOSE: 18-71 MCG (3-12 BREATHS)?FORM: INHALATIONA GAS, 0.6 MG/ML
     Route: 055
     Dates: start: 20150907
  5. TYVASO [Suspect]
     Active Substance: TREPROSTINIL
     Indication: PULMONARY ARTERIAL HYPERTENSION
     Dosage: DAILY DOSE: 18-72 MCG (3-12 BREATHS)
     Route: 055
     Dates: start: 20150709
  6. ADCIRCA [Suspect]
     Active Substance: TADALAFIL
     Route: 065

REACTIONS (3)
  - Product use issue [Unknown]
  - Throat tightness [Unknown]
  - Rash [Unknown]

NARRATIVE: CASE EVENT DATE: 20150709
